FAERS Safety Report 4713472-X (Version None)
Quarter: 2005Q3

REPORT INFORMATION
  Report Type: 
  Country: None (occurrence: None)
  Receive Date: 20050712
  Receipt Date: 20050627
  Transmission Date: 20060218
  Serious: Yes (Other)
  Sender: FDA-Public Use
  Company Number: CHPA2003US02247

PATIENT
  Age: 53 Year
  Sex: Female

DRUGS (35)
  1. EX-LAX (NCH) [Suspect]
     Indication: WEIGHT CONTROL
     Dosage: ORAL
     Route: 048
     Dates: start: 19630101
  2. NEXIUM [Concomitant]
  3. WELLBUTRIN SR [Concomitant]
  4. VIOXX [Concomitant]
  5. LORTAB [Concomitant]
  6. FOSAMAX [Concomitant]
  7. CLARITIN-D [Concomitant]
  8. MERIDIA [Concomitant]
  9. TOPROL-XL [Concomitant]
  10. CELEXA [Concomitant]
  11. XENICAL [Concomitant]
  12. PRILOSEC [Concomitant]
  13. TUSSIONEX (HYDROCODONE BITARTRATE, PHENYLTOLOXAMINE) [Concomitant]
  14. CARAFATE [Concomitant]
  15. REGLAN/USA (METOCLOPRAMINE HYDROCHLORIDE) [Concomitant]
  16. DEXAMETHASONE [Concomitant]
  17. DEPO-MEDROL [Concomitant]
  18. XYLOCAINE [Concomitant]
  19. BEXTRA [Concomitant]
  20. CORTENEMA [Concomitant]
  21. PROTONIX [Concomitant]
  22. CELESTONE/NET/ (BETAMETHASONE) [Concomitant]
  23. ADVIL [Concomitant]
  24. DURATUSS (GUAIFENESIN, PSEUDOEPHEDRINE HYDROCHLORIDE) [Concomitant]
  25. ZITHROMAX [Concomitant]
  26. AVELOX [Concomitant]
  27. IMITREX ^CERENEX^ (SUMATRIPTAN SUCCINATE) [Concomitant]
  28. CARNITINE (CARNITINE) [Concomitant]
  29. ALBUTEROL [Concomitant]
  30. ZOLOFT [Concomitant]
  31. MOBIC [Concomitant]
  32. SKELAXIN [Concomitant]
  33. MIRALAX [Concomitant]
  34. TENORETIC 100 [Concomitant]
  35. ULTRACET [Concomitant]

REACTIONS (32)
  - ANORECTAL DISORDER [None]
  - BACK PAIN [None]
  - CALCINOSIS [None]
  - CONSTIPATION [None]
  - DRUG DEPENDENCE [None]
  - DYSPEPSIA [None]
  - ECONOMIC PROBLEM [None]
  - EMOTIONAL DISORDER [None]
  - FLATULENCE [None]
  - GASTRIC ULCER [None]
  - GASTRITIS [None]
  - GASTROINTESTINAL HAEMORRHAGE [None]
  - HAEMATOCHEZIA [None]
  - HEPATIC STEATOSIS [None]
  - HORMONE LEVEL ABNORMAL [None]
  - HYPERTENSION [None]
  - HYPOACUSIS [None]
  - INFLAMMATION [None]
  - INJURY [None]
  - INTESTINAL OBSTRUCTION [None]
  - IRRITABLE BOWEL SYNDROME [None]
  - MELANOSIS COLI [None]
  - MIGRAINE [None]
  - MUCOSAL EROSION [None]
  - NAUSEA [None]
  - OEDEMA PERIPHERAL [None]
  - OVARIAN CYST [None]
  - PAIN IN EXTREMITY [None]
  - REFLUX OESOPHAGITIS [None]
  - SCIATICA [None]
  - STRESS [None]
  - WEIGHT INCREASED [None]
